FAERS Safety Report 8884887 (Version 1)
Quarter: 2012Q4

REPORT INFORMATION
  Report Type: 
  Country: GB (occurrence: GB)
  Receive Date: 20121102
  Receipt Date: 20121102
  Transmission Date: 20130627
  Serious: Yes (Other)
  Sender: FDA-Public Use
  Company Number: GB-TARO-2012P1061154

PATIENT
  Age: 86 Year
  Sex: Male

DRUGS (7)
  1. WARFARIN [Suspect]
  2. MICONAZOLE [Suspect]
  3. MICONAZOLE [Suspect]
  4. NYSTATIN PASTILLES [Concomitant]
  5. DIGOXIN [Concomitant]
  6. BUMETANIDE [Concomitant]
  7. CHLORPHENAMINE [Concomitant]

REACTIONS (5)
  - Drug interaction [Recovering/Resolving]
  - Tongue ulceration [Recovered/Resolved]
  - International normalised ratio increased [Recovering/Resolving]
  - Oral candidiasis [None]
  - Serum ferritin increased [None]
